FAERS Safety Report 10457107 (Version 2)
Quarter: 2014Q3

REPORT INFORMATION
  Report Type: Spontaneous
  Country: FR (occurrence: FR)
  Receive Date: 20140916
  Receipt Date: 20140922
  Transmission Date: 20150326
  Serious: Yes (Other)
  Sender: FDA-Public Use
  Company Number: FR-ABBVIE-14P-056-1282991-00

PATIENT
  Age: 23 Year
  Sex: Male

DRUGS (2)
  1. KALETRA [Suspect]
     Active Substance: LOPINAVIR\RITONAVIR
     Indication: HIV INFECTION
     Dosage: 200MG/50 MG
     Route: 048
     Dates: start: 20140816, end: 20140820
  2. TRUVADA [Concomitant]
     Active Substance: EMTRICITABINE\TENOFOVIR DISOPROXIL FUMARATE
     Indication: HIV INFECTION
     Dosage: 200MG/245 MG
     Dates: start: 20140816, end: 20140820

REACTIONS (2)
  - Jaundice [Recovered/Resolved]
  - Blood bilirubin unconjugated increased [Recovered/Resolved]

NARRATIVE: CASE EVENT DATE: 20140820
